FAERS Safety Report 7713481-2 (Version None)
Quarter: 2011Q3

REPORT INFORMATION
  Report Type: 
  Country: None (occurrence: None)
  Receive Date: 20110826
  Receipt Date: 20110824
  Transmission Date: 20111222
  Serious: Yes (Other)
  Sender: FDA-Public Use
  Company Number: IT-GILEAD-2011-0042318

PATIENT

DRUGS (1)
  1. TRUVADA [Suspect]
     Route: 064

REACTIONS (1)
  - NEONATAL DISORDER [None]
